FAERS Safety Report 21946580 (Version 1)
Quarter: 2023Q1

REPORT INFORMATION
  Report Type: Spontaneous
  Country: US (occurrence: None)
  Receive Date: 20230202
  Receipt Date: 20230202
  Transmission Date: 20230417
  Serious: Yes (Other)
  Sender: FDA-Public Use
  Company Number: None

PATIENT
  Sex: Female

DRUGS (3)
  1. GAVILYTE G [Suspect]
     Active Substance: POLYETHYLENE GLYCOL 3350\POTASSIUM CHLORIDE\SODIUM BICARBONATE\SODIUM CHLORIDE\SODIUM SULFATE
     Indication: Colonoscopy
     Dosage: OTHER QUANTITY : 1 236G, 4 LITERS;?
     Route: 048
     Dates: start: 20230125, end: 20230125
  2. VITAMINS [Concomitant]
     Active Substance: VITAMINS
  3. Calcium/ Vit D [Concomitant]

REACTIONS (2)
  - Blood pressure increased [None]
  - Heart rate abnormal [None]

NARRATIVE: CASE EVENT DATE: 20230125
